FAERS Safety Report 26091618 (Version 1)
Quarter: 2025Q4

REPORT INFORMATION
  Report Type: Spontaneous
  Country: CA (occurrence: CA)
  Receive Date: 20251126
  Receipt Date: 20251126
  Transmission Date: 20260118
  Serious: Yes (Other)
  Sender: TEVA
  Company Number: CA-TEVA-VS-3396168

PATIENT
  Age: 24 Year
  Sex: Female

DRUGS (9)
  1. TRAZODONE [Suspect]
     Active Substance: TRAZODONE HYDROCHLORIDE
     Indication: Product used for unknown indication
     Route: 065
  2. PANTOPRAZOLE [Suspect]
     Active Substance: PANTOPRAZOLE
     Indication: Product used for unknown indication
     Dosage: PANTOPRAZOLE SODIUM
     Route: 065
  3. ONDANSETRON [Suspect]
     Active Substance: ONDANSETRON
     Indication: Nausea
     Dosage: ONDANSETRON HYDROCHLORIDE
     Route: 065
  4. MESALAMINE [Suspect]
     Active Substance: MESALAMINE
     Indication: Colitis ulcerative
     Dosage: MEZAVANT ALSO KNOWN AS MESALAMINE , DOSE FORM : TABLET (DELAYED AND EXTENDED RELEASE)
     Route: 048
  5. VENLAFAXINE [Suspect]
     Active Substance: VENLAFAXINE HYDROCHLORIDE
     Indication: Generalised anxiety disorder
     Dosage: VENLAFAXINE HYDROCHLORIDE
     Route: 065
  6. ENTOCORT [Concomitant]
     Active Substance: BUDESONIDE
     Indication: Colitis ulcerative
     Dosage: DOSE FORM :  CAPSULE, SUSTAINED-RELEASE
     Route: 048
  7. PREDNISONE [Suspect]
     Active Substance: PREDNISONE
     Indication: Product used for unknown indication
     Dosage: 1 EVERY 1 DAYS
     Route: 065
  8. PREDNISONE [Suspect]
     Active Substance: PREDNISONE
     Indication: Product used for unknown indication
     Dosage: DOSE FORM :NOT SPECIFIED
     Route: 065
  9. IRON [Suspect]
     Active Substance: IRON
     Indication: Anaemia
     Route: 048

REACTIONS (12)
  - Nausea [Recovered/Resolved]
  - Swelling face [Recovered/Resolved]
  - Dizziness [Recovered/Resolved]
  - Labelled drug-drug interaction issue [Recovered/Resolved]
  - C-reactive protein increased [Recovered/Resolved]
  - Anaemia [Recovered/Resolved]
  - Lack of concomitant drug effect [Recovered/Resolved]
  - Acne [Recovered/Resolved]
  - Concomitant disease aggravated [Recovered/Resolved]
  - Colitis ulcerative [Recovered/Resolved]
  - Weight increased [Recovered/Resolved]
  - Serum ferritin decreased [Recovered/Resolved]
